FAERS Safety Report 8461269-X (Version None)
Quarter: 2012Q2

REPORT INFORMATION
  Report Type: 
  Country: None (occurrence: None)
  Receive Date: 20120625
  Receipt Date: 20120618
  Transmission Date: 20120825
  Serious: Yes (Life-Threatening, Hospitalization)
  Sender: FDA-Public Use
  Company Number: US-PFIZER INC-2012124423

PATIENT
  Sex: Male
  Weight: 59.864 kg

DRUGS (11)
  1. XALATAN [Concomitant]
     Dosage: UNK
     Dates: start: 20120319
  2. ALLOPURINOL [Concomitant]
     Dosage: 300 MG, 1X/DAY
     Dates: start: 20120319
  3. INLYTA [Suspect]
     Indication: RENAL CELL CARCINOMA
     Dosage: 5 MG, 2X/DAY
     Route: 048
     Dates: start: 20120513, end: 20120516
  4. ONDANSETRON HYDROCHLORIDE [Concomitant]
     Indication: VOMITING
  5. ACETYLSALICYLIC ACID [Concomitant]
     Dosage: 81 MG, UNK
     Dates: start: 20120319
  6. GLIPIZIDE [Concomitant]
     Dosage: 5 MG, 2X/DAY
     Dates: start: 20120319
  7. ISOSORBIDE DINITRATE [Concomitant]
     Dosage: 10 MG, 2X/DAY
     Dates: start: 20120601
  8. ONDANSETRON HYDROCHLORIDE [Concomitant]
     Indication: NAUSEA
     Dosage: 4 MG, AS NEEDED, 1 TABLET EVERY 4-6 HOURS
     Dates: start: 20120416
  9. CRESTOR [Concomitant]
  10. METOPROLOL TARTRATE [Concomitant]
     Dosage: 100 MG, 2X/DAY
     Dates: start: 20120416
  11. PROMETHAZINE HYDROCHLORIDE [Concomitant]
     Dosage: 12.5 MG, AS NEEDED, 1 TABLE EVERY 6 HOURS
     Dates: start: 20120416

REACTIONS (10)
  - MALIGNANT HYPERTENSION [None]
  - DIZZINESS [None]
  - COUGH [None]
  - RASH [None]
  - CONTUSION [None]
  - OEDEMA PERIPHERAL [None]
  - CONSTIPATION [None]
  - WEIGHT DECREASED [None]
  - FATIGUE [None]
  - DECREASED APPETITE [None]
